FAERS Safety Report 6177893-3 (Version None)
Quarter: 2009Q2

REPORT INFORMATION
  Report Type: 
  Country: None (occurrence: None)
  Receive Date: 20090430
  Receipt Date: 20090415
  Transmission Date: 20091009
  Serious: Yes (Hospitalization)
  Sender: FDA-Public Use
  Company Number: 2009S1006694

PATIENT
  Age: 85 Year
  Sex: Male

DRUGS (8)
  1. FENTANYL-100 [Suspect]
     Indication: OSTEOARTHRITIS
     Dosage: 75 UG; 1_3_DAYS; TRANSDERMAL
     Route: 062
     Dates: start: 20090324, end: 20090326
  2. ACETYLSALICYLIC ACID [Concomitant]
  3. ALFUZOSIN HCL [Concomitant]
  4. BISOPROLOL [Concomitant]
  5. RAMIPRIL [Concomitant]
  6. RANITIDINE [Concomitant]
  7. SIMVASTATIN [Concomitant]
  8. XALATAN [Concomitant]

REACTIONS (4)
  - BRONCHITIS [None]
  - CONFUSIONAL STATE [None]
  - FAECALOMA [None]
  - PYREXIA [None]
